FAERS Safety Report 5731195-5 (Version None)
Quarter: 2008Q2

REPORT INFORMATION
  Report Type: 
  Country: None (occurrence: None)
  Receive Date: 20080507
  Receipt Date: 20080425
  Transmission Date: 20081010
  Serious: No
  Sender: FDA-Public Use
  Company Number: US-BOEHRINGER INGELHEIM GMBH, GERMANY-2008-BP-06559BP

PATIENT
  Age: 70 Year
  Sex: Female

DRUGS (9)
  1. MIRAPEX [Suspect]
     Indication: PARKINSON'S DISEASE
     Route: 048
     Dates: start: 20080308, end: 20080420
  2. GLUCOSAMINE [Concomitant]
     Indication: ARTHRITIS
  3. CORGARD [Concomitant]
     Indication: HYPERTENSION
  4. NEXIUM [Concomitant]
     Indication: GASTROOESOPHAGEAL REFLUX DISEASE
  5. HYDROCHLOROTHIAZIDE [Concomitant]
     Indication: HYPERTENSION
  6. LOPID [Concomitant]
     Indication: BLOOD CHOLESTEROL INCREASED
  7. ZETIA [Concomitant]
     Indication: BLOOD CHOLESTEROL INCREASED
  8. K-DUR [Concomitant]
  9. VESICARE [Concomitant]
     Indication: INCONTINENCE

REACTIONS (7)
  - BACK PAIN [None]
  - CONSTIPATION [None]
  - FATIGUE [None]
  - INCREASED APPETITE [None]
  - JOINT SWELLING [None]
  - OEDEMA PERIPHERAL [None]
  - VISION BLURRED [None]
